FAERS Safety Report 15093281 (Version 1)
Quarter: 2018Q2

REPORT INFORMATION
  Report Type: Spontaneous
  Country: FR (occurrence: FR)
  Receive Date: 20180629
  Receipt Date: 20180629
  Transmission Date: 20180711
  Serious: Yes (Life-Threatening, Hospitalization)
  Sender: FDA-Public Use
  Company Number: FR-MYLANLABS-2018M1046277

PATIENT
  Age: 47 Year
  Sex: Male

DRUGS (6)
  1. OXALIPLATIN. [Suspect]
     Active Substance: OXALIPLATIN
     Indication: ADENOCARCINOMA OF COLON
     Dosage: SIX INFUSIONS TOTAL DOSE 680 MG/M2
     Route: 050
  2. OXALIPLATIN. [Suspect]
     Active Substance: OXALIPLATIN
     Dosage: PART OF HIPEC REGIMEN-GIVEN AT 42.5 DEG C OVER 30 MINUTES
     Route: 033
  3. FOLINIC ACID [Concomitant]
     Active Substance: LEUCOVORIN
     Indication: ADENOCARCINOMA OF COLON
     Dosage: PART OF FOLFOX REGIMEN. PART OF HIPEC REGIMEN-GIVEN AT 42.5 DEG C
     Route: 041
  4. CPT-11 [Concomitant]
     Active Substance: IRINOTECAN
     Indication: METASTASES TO PERITONEUM
  5. CPT-11 [Concomitant]
     Active Substance: IRINOTECAN
     Indication: ADENOCARCINOMA OF COLON
     Dosage: PART OF HIPEC REGIMEN-GIVEN AT 42.5 DEG C
     Route: 033
  6. 5-FLUOROURACIL                     /00098801/ [Concomitant]
     Active Substance: FLUOROURACIL
     Indication: ADENOCARCINOMA OF COLON
     Dosage: PART OF FOLFOX REGIMEN. PART OF HIPEC REGIMEN-GIVEN AT 42.5 DEG C
     Route: 041

REACTIONS (3)
  - Organising pneumonia [Recovered/Resolved]
  - Trismus [Unknown]
  - Acute respiratory failure [Recovered/Resolved]
